FAERS Safety Report 24581751 (Version 1)
Quarter: 2024Q4

REPORT INFORMATION
  Report Type: Spontaneous
  Country: US (occurrence: US)
  Receive Date: 20241105
  Receipt Date: 20241105
  Transmission Date: 20250114
  Serious: No
  Sender: JOHNSON AND JOHNSON
  Company Number: US-VIIV HEALTHCARE-US2024AMR128984

PATIENT
  Sex: Male

DRUGS (2)
  1. RILPIVIRINE [Suspect]
     Active Substance: RILPIVIRINE
     Indication: Asymptomatic HIV infection
     Dosage: UNK, MO, UNK, CABENUVA 600/900 MG ER SUSP
     Route: 030
  2. CABOTEGRAVIR [Suspect]
     Active Substance: CABOTEGRAVIR
     Indication: Asymptomatic HIV infection
     Dosage: UNK, MO, UNK, CABENUVA 600/900 MG ER SUSP
     Route: 030

REACTIONS (1)
  - Sleep disorder [Unknown]
